FAERS Safety Report 8101352-1 (Version None)
Quarter: 2012Q1

REPORT INFORMATION
  Report Type: 
  Country: None (occurrence: None)
  Receive Date: 20120129
  Receipt Date: 20110928
  Transmission Date: 20120608
  Serious: No
  Sender: FDA-Public Use
  Company Number: US-ABBOTT-11P-163-0858390-00

PATIENT
  Sex: Female

DRUGS (7)
  1. HUMIRA [Suspect]
     Indication: RHEUMATOID ARTHRITIS
     Dates: start: 20090901
  2. METHADONE HCL [Concomitant]
     Indication: BACK PAIN
  3. PAXIL [Concomitant]
     Indication: DEPRESSION
  4. OXYCODONE HCL [Concomitant]
     Indication: BACK PAIN
  5. NORTRIPTYLINE HCL [Concomitant]
     Indication: SLEEP DISORDER THERAPY
  6. FLEXERIL [Concomitant]
     Indication: BACK PAIN
  7. GABAPENTIN [Concomitant]
     Indication: FIBROMYALGIA

REACTIONS (8)
  - GAIT DISTURBANCE [None]
  - DRUG DOSE OMISSION [None]
  - ARTHRALGIA [None]
  - COUGH [None]
  - MALAISE [None]
  - MUSCULOSKELETAL STIFFNESS [None]
  - LOWER RESPIRATORY TRACT INFECTION [None]
  - SPUTUM DISCOLOURED [None]
